FAERS Safety Report 5375502-4 (Version None)
Quarter: 2007Q2

REPORT INFORMATION
  Report Type: 
  Country: None (occurrence: None)
  Receive Date: 20070629
  Receipt Date: 20070618
  Transmission Date: 20071010
  Serious: Yes (Hospitalization, Other)
  Sender: FDA-Public Use
  Company Number: UA-PFIZER INC-2007049657

PATIENT
  Sex: Female
  Weight: 57 kg

DRUGS (6)
  1. GABAPENTIN [Suspect]
     Indication: DIABETIC NEUROPATHY
     Route: 048
  2. GABAPENTIN [Suspect]
     Indication: PAIN
  3. ALPHA LIPOIC ACID [Suspect]
     Route: 048
  4. MILGAMMA [Concomitant]
     Route: 048
  5. NOVORAPID [Concomitant]
     Dosage: TEXT:26 IU-FREQ:DAILY
     Route: 058
  6. LANTUS [Concomitant]
     Route: 058

REACTIONS (4)
  - BRAIN CONTUSION [None]
  - LOWER LIMB FRACTURE [None]
  - MENTAL DISORDER [None]
  - SUICIDE ATTEMPT [None]
